FAERS Safety Report 5506962-3 (Version None)
Quarter: 2007Q4

REPORT INFORMATION
  Report Type: 
  Country: None (occurrence: None)
  Receive Date: 20071105
  Receipt Date: 20071029
  Transmission Date: 20080405
  Serious: Yes (Hospitalization)
  Sender: FDA-Public Use
  Company Number: US-GENENTECH-247676

PATIENT
  Sex: Male

DRUGS (12)
  1. XOLAIR [Suspect]
     Indication: DRUG USE FOR UNKNOWN INDICATION
     Dosage: 225 MG, Q2W
     Dates: start: 20070730
  2. EPINEPHRINE [Concomitant]
     Indication: URTICARIA
  3. PREDNISONE TAB [Concomitant]
     Indication: URTICARIA
     Dosage: 40 MG, UNK
  4. BENADRYL [Concomitant]
     Indication: URTICARIA
     Dosage: 50 MG, QID
  5. NEBULIZER (UNK INGREDIENTS) [Concomitant]
     Indication: WHEEZING
  6. SINGULAIR [Concomitant]
     Indication: DRUG USE FOR UNKNOWN INDICATION
  7. ADVAIR DISKUS 100/50 [Concomitant]
     Indication: DRUG USE FOR UNKNOWN INDICATION
  8. ALBUTEROL [Concomitant]
     Indication: DRUG USE FOR UNKNOWN INDICATION
  9. NEXIUM [Concomitant]
     Indication: DRUG USE FOR UNKNOWN INDICATION
  10. FLOMAX [Concomitant]
     Indication: DRUG USE FOR UNKNOWN INDICATION
  11. PROSCAR [Concomitant]
     Indication: DRUG USE FOR UNKNOWN INDICATION
  12. DOXAZOSIN MESYLATE [Concomitant]
     Indication: DRUG USE FOR UNKNOWN INDICATION

REACTIONS (3)
  - PNEUMONIA [None]
  - URTICARIA [None]
  - VOMITING [None]
